FAERS Safety Report 9422809 (Version 1)
Quarter: 2013Q3

REPORT INFORMATION
  Report Type: Spontaneous
  Country: JP (occurrence: JP)
  Receive Date: 20130726
  Receipt Date: 20130726
  Transmission Date: 20140515
  Serious: Yes (Hospitalization)
  Sender: FDA-Public Use
  Company Number: JP-BAYER-2013-067862

PATIENT
  Age: 86 Year
  Sex: Male
  Weight: 66 kg

DRUGS (11)
  1. NEXAVAR [Suspect]
     Indication: RENAL CELL CARCINOMA
     Dosage: 400 MG, QD
     Route: 048
     Dates: start: 20130517, end: 20130527
  2. NEXAVAR [Suspect]
     Indication: RENAL CELL CARCINOMA
     Dosage: 200 MG, QD
     Dates: start: 20130702, end: 20130715
  3. OLMETEC [Concomitant]
     Indication: HYPERTENSION
     Dosage: DAILY DOSE 40 MG
     Route: 048
  4. CALBLOCK [Concomitant]
     Indication: HYPERTENSION
     Dosage: DAILY DOSE 16 MG
     Route: 048
  5. SERMION [Concomitant]
     Indication: CEREBRAL INFARCTION
     Dosage: DAILY DOSE 15 MG
     Route: 048
  6. GASTER D [Concomitant]
     Dosage: DAILY DOSE 20 MG
     Route: 048
  7. BAYASPIRIN [Concomitant]
     Indication: ANGINA PECTORIS
     Dosage: DAILY DOSE 100 MG
     Route: 048
     Dates: end: 20130527
  8. PANALDINE [Concomitant]
     Indication: ANGINA PECTORIS
     Dosage: DAILY DOSE 200 MG
     Route: 048
     Dates: end: 20130527
  9. HARNAL [Concomitant]
     Indication: BENIGN PROSTATIC HYPERPLASIA
     Dosage: DAILY DOSE .2 MG
     Route: 048
  10. ZYLORIC [Concomitant]
     Indication: HYPERURICAEMIA
     Dosage: DAILY DOSE 100 MG
     Route: 048
  11. MAGMITT [Concomitant]
     Indication: CONSTIPATION
     Dosage: DAILY DOSE 990 MG
     Route: 048

REACTIONS (1)
  - Diverticulitis intestinal haemorrhagic [Recovered/Resolved]
